FAERS Safety Report 12435685 (Version 1)
Quarter: 2016Q2

REPORT INFORMATION
  Report Type: Spontaneous
  Country: US (occurrence: US)
  Receive Date: 20160603
  Receipt Date: 20160603
  Transmission Date: 20160815
  Serious: No
  Sender: FDA-Public Use
  Company Number: US-ROCHE-1675904

PATIENT
  Sex: Female

DRUGS (1)
  1. XELODA [Suspect]
     Active Substance: CAPECITABINE
     Indication: BREAST CANCER
     Route: 065
     Dates: start: 2011

REACTIONS (6)
  - Nausea [Unknown]
  - Alopecia [Recovering/Resolving]
  - Memory impairment [Not Recovered/Not Resolved]
  - Neuropathy peripheral [Unknown]
  - Madarosis [Recovering/Resolving]
  - Vomiting [Unknown]
